FAERS Safety Report 19461557 (Version 1)
Quarter: 2021Q2

REPORT INFORMATION
  Report Type: Report from Study
  Country: GR (occurrence: GR)
  Receive Date: 20210625
  Receipt Date: 20210625
  Transmission Date: 20210717
  Serious: Yes (Hospitalization, Other)
  Sender: FDA-Public Use
  Company Number: GR-MYLANLABS-2021M1036741

PATIENT
  Age: 59 Year
  Sex: Female
  Weight: 88 kg

DRUGS (11)
  1. PACLITAXEL ALBUMIN [Suspect]
     Active Substance: PACLITAXEL
     Indication: BREAST CANCER METASTATIC
     Dosage: MOST RECENT DOSE ON 26/APR/2017
     Route: 042
     Dates: start: 20170120
  2. INNOHEP [Concomitant]
     Active Substance: TINZAPARIN SODIUM
     Dates: start: 20170619, end: 20170705
  3. DECADRON [Concomitant]
     Active Substance: DEXAMETHASONE
     Dates: start: 20160619, end: 20170621
  4. ESOMEPRAZOLE. [Concomitant]
     Active Substance: ESOMEPRAZOLE MAGNESIUM
     Dates: start: 20160619, end: 20170721
  5. TRASTUZUMAB. [Suspect]
     Active Substance: TRASTUZUMAB
     Dosage: MOST RECENT DOSE ON 26/APR/2017
     Route: 042
     Dates: start: 20161205
  6. MANNITOL. [Concomitant]
     Active Substance: MANNITOL
     Dosage: UNK
     Dates: start: 20170711, end: 20170713
  7. CARBOPLATIN. [Suspect]
     Active Substance: CARBOPLATIN
     Indication: BREAST CANCER METASTATIC
     Dosage: MOST RECENT DOSE ON 26/APR/2017
     Route: 042
     Dates: start: 20170120
  8. PERTUZUMAB. [Suspect]
     Active Substance: PERTUZUMAB
     Indication: BREAST CANCER METASTATIC
     Dosage: MOST RECENT DOSE ON 27/DEC/2016
     Route: 042
     Dates: start: 20161205
  9. PACLITAXEL. [Suspect]
     Active Substance: PACLITAXEL
     Indication: BREAST CANCER METASTATIC
     Dosage: MOST RECENT DOSE ON 27/DEC/2016
     Route: 042
     Dates: start: 20161205
  10. TRIATEC                            /00885601/ [Concomitant]
     Active Substance: RAMIPRIL
  11. NORVASC [Concomitant]
     Active Substance: AMLODIPINE BESYLATE
     Dates: end: 20170721

REACTIONS (5)
  - Thrombocytopenia [Unknown]
  - Anxiety disorder [Recovered/Resolved]
  - Diarrhoea [Recovered/Resolved]
  - Muscular weakness [Recovered/Resolved]
  - Tumour associated fever [Recovered/Resolved]

NARRATIVE: CASE EVENT DATE: 20170619
